FAERS Safety Report 19037734 (Version 1)
Quarter: 2021Q1

REPORT INFORMATION
  Report Type: Spontaneous
  Country: US (occurrence: US)
  Receive Date: 20210322
  Receipt Date: 20210322
  Transmission Date: 20210420
  Serious: Yes (Hospitalization)
  Sender: FDA-Public Use
  Company Number: None

PATIENT
  Age: 59 Year
  Sex: Female
  Weight: 67.95 kg

DRUGS (5)
  1. NACL 0.9% 1000ML [Concomitant]
  2. GAMMAGARD [Suspect]
     Active Substance: HUMAN IMMUNOGLOBULIN G
     Indication: POLYMYOSITIS
     Dosage: ?          OTHER FREQUENCY:4 TIMES A MONTH;?
     Route: 042
  3. TYLENOL 1000MG [Concomitant]
  4. GAMMAGARD [Suspect]
     Active Substance: HUMAN IMMUNOGLOBULIN G
     Indication: POLYMYOSITIS
     Dosage: ?          OTHER FREQUENCY:4 TIMES A MONTH;?
     Route: 042
  5. BENDARYL 50 MG [Concomitant]

REACTIONS (2)
  - Meningitis aseptic [None]
  - Headache [None]

NARRATIVE: CASE EVENT DATE: 20210317
